FAERS Safety Report 4932667-3 (Version None)
Quarter: 2006Q1

REPORT INFORMATION
  Report Type: 
  Country: None (occurrence: None)
  Receive Date: 20060301
  Receipt Date: 20060223
  Transmission Date: 20060701
  Serious: Yes (Hospitalization, Other)
  Sender: FDA-Public Use
  Company Number: 200514487BCC

PATIENT
  Age: 60 Year
  Sex: Female
  Weight: 111.1313 kg

DRUGS (12)
  1. ACETYLSALICYLIC ACID SRT [Suspect]
     Indication: CARDIAC DISORDER
     Dosage: 81 MG, QD, ORAL
     Route: 048
     Dates: start: 19950101
  2. GLYBURIDE [Concomitant]
  3. OXYBUTYNIN [Concomitant]
  4. PROZAC [Concomitant]
  5. DIOVAN [Concomitant]
  6. LOVASTATIN [Concomitant]
  7. GABAPENTIN [Concomitant]
  8. AVANDIA [Concomitant]
  9. ALLEGRA [Concomitant]
  10. CENTRUM SILVER [Concomitant]
  11. CALCIUM W/VITAMIN D [Concomitant]
  12. ASCORBIC ACID [Concomitant]

REACTIONS (2)
  - DIABETES MELLITUS NON-INSULIN-DEPENDENT [None]
  - THROMBOSIS [None]
